FAERS Safety Report 5152699-2 (Version None)
Quarter: 2006Q4

REPORT INFORMATION
  Report Type: 
  Country: None (occurrence: None)
  Receive Date: 20061109
  Receipt Date: 20061027
  Transmission Date: 20070319
  Serious: Yes (Other)
  Sender: FDA-Public Use
  Company Number: 2006132719

PATIENT
  Weight: 10 kg

DRUGS (1)
  1. DILANTIN [Suspect]
     Indication: CONVULSION
     Dosage: NASOGASTRIC TUBE

REACTIONS (2)
  - ANTICONVULSANT DRUG LEVEL DECREASED [None]
  - CONVULSION [None]
